FAERS Safety Report 10024003 (Version 2)
Quarter: 2014Q1

REPORT INFORMATION
  Report Type: Spontaneous
  Country: US (occurrence: US)
  Receive Date: 20140320
  Receipt Date: 20140320
  Transmission Date: 20141002
  Serious: Yes (Life-Threatening, Disabling)
  Sender: FDA-Public Use
  Company Number: US-GE HEALTHCARE MEDICAL DIAGNOSTICS-OSCN-PR-0704S-0163

PATIENT
  Age: 48 Year
  Sex: Female

DRUGS (6)
  1. OMNISCAN [Suspect]
     Indication: RENAL TRANSPLANT
     Route: 042
     Dates: start: 20050825, end: 20050825
  2. OMNISCAN [Suspect]
     Indication: MASS
     Route: 042
     Dates: start: 20051012, end: 20051012
  3. OMNISCAN [Suspect]
     Indication: INFARCTION
     Route: 042
     Dates: start: 20051013, end: 20051013
  4. OMNISCAN [Suspect]
     Indication: CELLULITIS
     Route: 042
     Dates: start: 20051016, end: 20051016
  5. OMNISCAN [Suspect]
     Indication: CEREBROVASCULAR ACCIDENT
     Route: 042
     Dates: start: 20051017, end: 20051017
  6. OMNISCAN [Suspect]
     Indication: SKIN ULCER
     Route: 042
     Dates: start: 20060505, end: 20060505

REACTIONS (1)
  - Nephrogenic systemic fibrosis [Not Recovered/Not Resolved]
